FAERS Safety Report 7217856-X (Version None)
Quarter: 2010Q4

REPORT INFORMATION
  Report Type: 
  Country: None (occurrence: None)
  Receive Date: 20101223
  Receipt Date: 20101220
  Transmission Date: 20110411
  Serious: Yes (Death, Hospitalization)
  Sender: FDA-Public Use
  Company Number: 2010SP021493

PATIENT
  Age: 40 Year
  Sex: Female
  Weight: 45.6 kg

DRUGS (10)
  1. PEGINTERFERON ALFA-2B [Suspect]
     Indication: HEPATITIS C
     Dosage: 0.13 ML;QD;SC
     Route: 058
     Dates: start: 20090609, end: 20100405
  2. RIBAVIRIN [Suspect]
     Indication: HEPATITIS C
     Dosage: 200 MG;BID;PO
     Route: 048
     Dates: start: 20090609, end: 20100412
  3. RISPERDAL [Suspect]
     Indication: SCHIZOPHRENIA
     Dosage: 2 MG;QD;PO, 6 MG;QD;PO, 4 MG;QD;PO, 3 MG;QD;PO, 1 MG;QD;PO, 0.5 MG;QD;PO
     Route: 048
     Dates: start: 20100414, end: 20100416
  4. RISPERDAL [Suspect]
     Indication: SCHIZOPHRENIA
     Dosage: 2 MG;QD;PO, 6 MG;QD;PO, 4 MG;QD;PO, 3 MG;QD;PO, 1 MG;QD;PO, 0.5 MG;QD;PO
     Route: 048
     Dates: start: 20100417, end: 20100507
  5. RISPERDAL [Suspect]
     Indication: SCHIZOPHRENIA
     Dosage: 2 MG;QD;PO, 6 MG;QD;PO, 4 MG;QD;PO, 3 MG;QD;PO, 1 MG;QD;PO, 0.5 MG;QD;PO
     Route: 048
     Dates: start: 20100508, end: 20100511
  6. RISPERDAL [Suspect]
     Indication: SCHIZOPHRENIA
     Dosage: 2 MG;QD;PO, 6 MG;QD;PO, 4 MG;QD;PO, 3 MG;QD;PO, 1 MG;QD;PO, 0.5 MG;QD;PO
     Route: 048
     Dates: start: 20100512, end: 20100521
  7. RISPERDAL [Suspect]
     Indication: SCHIZOPHRENIA
     Dosage: 2 MG;QD;PO, 6 MG;QD;PO, 4 MG;QD;PO, 3 MG;QD;PO, 1 MG;QD;PO, 0.5 MG;QD;PO
     Route: 048
     Dates: start: 20100522, end: 20100601
  8. RISPERDAL [Suspect]
     Indication: SCHIZOPHRENIA
     Dosage: 2 MG;QD;PO, 6 MG;QD;PO, 4 MG;QD;PO, 3 MG;QD;PO, 1 MG;QD;PO, 0.5 MG;QD;PO
     Route: 048
     Dates: start: 20100602, end: 20100624
  9. LOXONIN [Concomitant]
  10. FUROZIN [Concomitant]

REACTIONS (6)
  - ANXIETY [None]
  - DEPRESSION [None]
  - SCHIZOPHRENIA [None]
  - SOMATOFORM DISORDER [None]
  - STRESS [None]
  - SUICIDAL IDEATION [None]
